FAERS Safety Report 9222270 (Version 1)
Quarter: 2013Q2

REPORT INFORMATION
  Report Type: Report from Study
  Country: US (occurrence: US)
  Receive Date: 20130410
  Receipt Date: 20130410
  Transmission Date: 20140414
  Serious: Yes (Death)
  Sender: FDA-Public Use
  Company Number: US-OTSUKA-US-2013-10449

PATIENT
  Age: 68 Year
  Sex: Male
  Weight: 62.59 kg

DRUGS (10)
  1. SAMSCA [Suspect]
     Indication: HYPONATRAEMIA
     Dosage: 15 MG MILLIGRAM(S), UNK
     Dates: start: 20130205, end: 20130213
  2. NORVASC [Concomitant]
     Dosage: 5 MG MILLIGRAM(S), UNK
  3. CALCIUM CARBONATE PCH [Concomitant]
     Dosage: 1500 MG MILLIGRAM(S), BID
  4. K-PHOS NEUTRAL [Concomitant]
     Dosage: 1 PACKET DAILY
  5. LISINOPRIL [Concomitant]
     Dosage: 30 MG MILLIGRAM(S), UNK
  6. LOVENOX [Concomitant]
     Dosage: 65 MG MILLIGRAM(S), Q12HR
     Route: 058
  7. METFORMIN [Concomitant]
     Dosage: 500 MG MILLIGRAM(S), QID
  8. XELODA [Concomitant]
     Dosage: 1500 MG MILLIGRAM(S), BID
  9. ZOFRAN [Concomitant]
     Indication: NAUSEA
     Dosage: 4 MG MILLIGRAM(S), Q4HR PRN
  10. ROXICODONE [Concomitant]
     Indication: PAIN
     Dosage: 10 MG MILLIGRAM(S), Q6HR PRN

REACTIONS (2)
  - Sepsis [Fatal]
  - Colon cancer [Fatal]
